APPROVED DRUG PRODUCT: DIAZEPAM
Active Ingredient: DIAZEPAM
Strength: 2MG
Dosage Form/Route: TABLET;ORAL
Application: A070781 | Product #001
Applicant: ACTAVIS ELIZABETH LLC
Approved: Mar 19, 1986 | RLD: No | RS: No | Type: DISCN